FAERS Safety Report 12930340 (Version 2)
Quarter: 2016Q4

REPORT INFORMATION
  Report Type: Report from Study
  Country: JP (occurrence: JP)
  Receive Date: 20161110
  Receipt Date: 20161230
  Transmission Date: 20170207
  Serious: Yes (Other)
  Sender: FDA-Public Use
  Company Number: PHJP2016JP008426

PATIENT
  Age: 61 Year
  Sex: Female
  Weight: 55 kg

DRUGS (11)
  1. TS-1 [Suspect]
     Active Substance: GIMERACIL\OTERACIL\TEGAFUR
     Dosage: 100 MG, UNK
     Route: 048
     Dates: start: 20121228
  2. LIPACREON [Concomitant]
     Active Substance: PANCRELIPASE
     Indication: PANCREATIC INSUFFICIENCY
     Dosage: 1350 MG, UNK
     Route: 048
     Dates: start: 20121009
  3. LOXONIN [Concomitant]
     Active Substance: LOXOPROFEN SODIUM
     Indication: PYREXIA
     Dosage: 180 MG, UNK
     Route: 048
  4. LOXONIN [Concomitant]
     Active Substance: LOXOPROFEN SODIUM
     Indication: CANCER PAIN
  5. TS-1 [Suspect]
     Active Substance: GIMERACIL\OTERACIL\TEGAFUR
     Indication: PANCREATIC NEUROENDOCRINE TUMOUR
     Dosage: UNK
     Route: 048
     Dates: start: 20080317, end: 20081123
  6. CRAVIT [Concomitant]
     Active Substance: LEVOFLOXACIN
     Indication: CHOLANGITIS
     Dosage: 500 MG, PRN
     Route: 048
     Dates: start: 20121126, end: 20121211
  7. AFINITOR [Suspect]
     Active Substance: EVEROLIMUS
     Indication: PANCREATIC NEUROENDOCRINE TUMOUR
     Dosage: 5 MG, QD
     Route: 048
     Dates: start: 20120917, end: 20120920
  8. AFINITOR [Suspect]
     Active Substance: EVEROLIMUS
     Dosage: 5 MG, QD
     Route: 048
     Dates: start: 20121010, end: 20121113
  9. PARIET [Concomitant]
     Active Substance: RABEPRAZOLE SODIUM
     Indication: GASTRIC ULCER
     Dosage: 10 MG, UNK
     Route: 048
  10. TS-1 [Suspect]
     Active Substance: GIMERACIL\OTERACIL\TEGAFUR
     Dosage: UNK
     Route: 048
     Dates: start: 20100628, end: 20110926
  11. SELBEX [Concomitant]
     Active Substance: TEPRENONE
     Indication: GASTRIC ULCER
     Dosage: 150 MG, UNK
     Route: 048

REACTIONS (11)
  - Pleural effusion [Recovered/Resolved]
  - Pyrexia [Recovered/Resolved]
  - Malignant neoplasm progression [Unknown]
  - Pyrexia [Recovered/Resolved]
  - Herpes zoster [Recovered/Resolved]
  - Arthralgia [Recovered/Resolved]
  - Pain [Recovered/Resolved]
  - Pyrexia [Recovered/Resolved]
  - Pyrexia [Recovered/Resolved]
  - Musculoskeletal chest pain [Recovered/Resolved]
  - Spinal pain [Recovered/Resolved]

NARRATIVE: CASE EVENT DATE: 20120918
